FAERS Safety Report 12051956 (Version 1)
Quarter: 2016Q1

REPORT INFORMATION
  Report Type: Spontaneous
  Country: US (occurrence: US)
  Receive Date: 20160209
  Receipt Date: 20160209
  Transmission Date: 20160526
  Serious: Yes (Death, Hospitalization, Other)
  Sender: FDA-Public Use
  Company Number: US-ARBOR PHARMACEUTICALS, LLC-US-2016ARB000074

PATIENT
  Age: 31 Year
  Sex: Male

DRUGS (1)
  1. AMPHETAMINE SULFATE [Suspect]
     Active Substance: AMPHETAMINE SULFATE
     Indication: PRODUCT USED FOR UNKNOWN INDICATION
     Dosage: UNK DF, UNK
     Route: 048

REACTIONS (12)
  - Urine output decreased [Unknown]
  - Oedema [Unknown]
  - Tachycardia [Unknown]
  - Disseminated intravascular coagulation [Unknown]
  - Cardiac arrest [Unknown]
  - Rhabdomyolysis [Unknown]
  - Acute respiratory failure [Unknown]
  - Unresponsive to stimuli [Unknown]
  - Pupillary reflex impaired [Unknown]
  - Toxicity to various agents [Fatal]
  - Seizure [Unknown]
  - Hyperhidrosis [Unknown]

NARRATIVE: CASE EVENT DATE: 2014
